FAERS Safety Report 19746520 (Version 8)
Quarter: 2024Q2

REPORT INFORMATION
  Report Type: Report from Study
  Country: US (occurrence: US)
  Receive Date: 20210825
  Receipt Date: 20240419
  Transmission Date: 20240716
  Serious: Yes (Other)
  Sender: FDA-Public Use
  Company Number: US-TAKEDA-US202019880

PATIENT
  Age: 71 Year
  Sex: Female

DRUGS (6)
  1. HUMAN IMMUNOGLOBULIN G [Suspect]
     Active Substance: HUMAN IMMUNOGLOBULIN G
     Indication: Primary immunodeficiency syndrome
     Dosage: 30 GRAM, Q3WEEKS
     Route: 065
  2. HUMAN IMMUNOGLOBULIN G [Suspect]
     Active Substance: HUMAN IMMUNOGLOBULIN G
     Indication: Immunodeficiency common variable
     Dosage: UNK
     Route: 042
  3. HUMAN IMMUNOGLOBULIN G [Suspect]
     Active Substance: HUMAN IMMUNOGLOBULIN G
     Dosage: 30 GRAM
     Route: 042
  4. HUMAN IMMUNOGLOBULIN G [Suspect]
     Active Substance: HUMAN IMMUNOGLOBULIN G
     Dosage: 40 GRAM
     Route: 042
     Dates: start: 202311
  5. HUMAN IMMUNOGLOBULIN G [Suspect]
     Active Substance: HUMAN IMMUNOGLOBULIN G
     Dosage: 30 GRAM
     Route: 042
  6. HUMAN IMMUNOGLOBULIN G [Suspect]
     Active Substance: HUMAN IMMUNOGLOBULIN G
     Dosage: UNK, Q3WEEKS
     Route: 042

REACTIONS (20)
  - Cardiomyopathy [Unknown]
  - Arrhythmia [Unknown]
  - Cardiac failure [Unknown]
  - Laryngitis [Unknown]
  - Candida infection [Unknown]
  - Lung disorder [Unknown]
  - Bronchial disorder [Unknown]
  - Oropharyngeal discomfort [Unknown]
  - Upper respiratory tract infection [Unknown]
  - Hyperaesthesia [Unknown]
  - Blister [Unknown]
  - Sinusitis [Unknown]
  - Infusion site erythema [Unknown]
  - Lymphadenopathy [Unknown]
  - Malaise [Unknown]
  - Pyrexia [Unknown]
  - Fatigue [Unknown]
  - Infusion site pain [Unknown]
  - Heart rate increased [Unknown]
  - Oxygen saturation decreased [Unknown]

NARRATIVE: CASE EVENT DATE: 20240322
